FAERS Safety Report 13124295 (Version 4)
Quarter: 2018Q2

REPORT INFORMATION
  Report Type: Spontaneous
  Country: US (occurrence: US)
  Receive Date: 20170118
  Receipt Date: 20180606
  Transmission Date: 20180711
  Serious: Yes (Other)
  Sender: FDA-Public Use
  Company Number: US-ASTRAZENECA-2017SE03034

PATIENT
  Age: 18782 Day
  Sex: Male
  Weight: 92 kg

DRUGS (71)
  1. PROTONIX [Suspect]
     Active Substance: PANTOPRAZOLE SODIUM
     Indication: PROPHYLAXIS AGAINST GASTROINTESTINAL ULCER
     Dosage: EVERY 12 HOURS FOR TWO DAYS AND THEN DAILY UNKNOWN
     Route: 065
     Dates: start: 20130504, end: 20130505
  2. PANTOPRAZOLE [Suspect]
     Active Substance: PANTOPRAZOLE
     Dosage: DELAYED RELEASE (ORLEC)
     Route: 048
     Dates: start: 2009
  3. LOVASTATIN. [Concomitant]
     Active Substance: LOVASTATIN
     Route: 065
     Dates: start: 20091105
  4. CAPOTEN [Concomitant]
     Active Substance: CAPTOPRIL
     Route: 065
  5. AMITRIZA [Concomitant]
     Indication: IRRITABLE BOWEL SYNDROME
     Route: 048
     Dates: start: 2017
  6. LORTAB [Concomitant]
     Active Substance: ACETAMINOPHEN\HYDROCODONE BITARTRATE
     Dosage: (7.5-500MG) 1 TAB 3 TIMES A DAILY
     Route: 048
  7. NEXIUM [Suspect]
     Active Substance: ESOMEPRAZOLE MAGNESIUM
     Indication: PROPHYLAXIS AGAINST GASTROINTESTINAL ULCER
     Route: 048
     Dates: start: 20050322, end: 2009
  8. PRILOSEC [Suspect]
     Active Substance: OMEPRAZOLE MAGNESIUM
     Route: 048
  9. PROTONIX [Suspect]
     Active Substance: PANTOPRAZOLE SODIUM
     Indication: PEPTIC ULCER
     Dosage: 40.0MG UNKNOWN
     Route: 065
     Dates: start: 20081012
  10. ZEGERID [Suspect]
     Active Substance: OMEPRAZOLE\SODIUM BICARBONATE
     Route: 065
  11. OMEPRAZOLE. [Concomitant]
     Active Substance: OMEPRAZOLE
     Route: 048
     Dates: start: 20130506
  12. NORVASC [Concomitant]
     Active Substance: AMLODIPINE BESYLATE
     Indication: HYPERTENSION
     Route: 065
     Dates: start: 20050218
  13. COZAAR [Concomitant]
     Active Substance: LOSARTAN POTASSIUM
     Route: 065
     Dates: start: 20171106
  14. BUMEX [Concomitant]
     Active Substance: BUMETANIDE
     Route: 065
  15. LIPITOR [Concomitant]
     Active Substance: ATORVASTATIN CALCIUM
     Route: 065
  16. ALLOPURINOL. [Concomitant]
     Active Substance: ALLOPURINOL
     Route: 048
  17. HEPARIN [Concomitant]
     Active Substance: HEPARIN SODIUM
     Dosage: 5000 UNIT=1 ML INJ
     Route: 065
  18. LISINOPRIL. [Concomitant]
     Active Substance: LISINOPRIL
     Route: 048
  19. HYDROXYZINE [Concomitant]
     Active Substance: HYDROXYZINE HYDROCHLORIDE
     Indication: PRURITUS
     Route: 065
     Dates: start: 2005, end: 2007
  20. ACETAMINOPHEN. [Concomitant]
     Active Substance: ACETAMINOPHEN
     Indication: HEADACHE
     Route: 065
     Dates: start: 2015
  21. PROTONIX [Suspect]
     Active Substance: PANTOPRAZOLE SODIUM
     Indication: GASTROOESOPHAGEAL REFLUX DISEASE
     Dosage: 40.0MG UNKNOWN
     Route: 065
     Dates: start: 20081012
  22. GABAPENTIN. [Concomitant]
     Active Substance: GABAPENTIN
     Dosage: 100.0UG UNKNOWN
     Route: 065
     Dates: start: 20111024
  23. EDARBI [Concomitant]
     Active Substance: AZILSARTAN KAMEDOXOMIL
     Route: 065
  24. HYGROTON [Concomitant]
     Active Substance: CHLORTHALIDONE
     Route: 065
  25. LASIX [Concomitant]
     Active Substance: FUROSEMIDE
     Route: 065
  26. DEMADEX [Concomitant]
     Active Substance: TORSEMIDE
     Route: 065
  27. FUROSEMIDE. [Concomitant]
     Active Substance: FUROSEMIDE
     Dosage: 40MG=4ML INJ IV ONCE
     Route: 065
  28. PROTONIX [Suspect]
     Active Substance: PANTOPRAZOLE SODIUM
     Indication: PEPTIC ULCER
     Route: 048
     Dates: start: 2009, end: 2016
  29. HYDROXYZINE HYDROCHLORIDE. [Concomitant]
     Active Substance: HYDROXYZINE HYDROCHLORIDE
     Dosage: 25.0UG UNKNOWN
     Route: 065
     Dates: start: 20101216
  30. ALTACE [Concomitant]
     Active Substance: RAMIPRIL
     Route: 065
  31. AVAPRO [Concomitant]
     Active Substance: IRBESARTAN
     Route: 065
  32. BENICAR [Concomitant]
     Active Substance: OLMESARTAN MEDOXOMIL
     Route: 065
  33. NIFEDIPINE. [Concomitant]
     Active Substance: NIFEDIPINE
     Route: 065
  34. PRAVASTATIN. [Concomitant]
     Active Substance: PRAVASTATIN
     Route: 065
  35. AMOXICILLIN. [Concomitant]
     Active Substance: AMOXICILLIN
     Indication: ANTIBIOTIC THERAPY
     Route: 065
     Dates: start: 2017
  36. PROTONIX [Suspect]
     Active Substance: PANTOPRAZOLE SODIUM
     Indication: GASTROOESOPHAGEAL REFLUX DISEASE
     Route: 048
     Dates: start: 2009, end: 2016
  37. DIGOXIN. [Concomitant]
     Active Substance: DIGOXIN
     Route: 048
     Dates: start: 20091105
  38. METRONIDAZOLE. [Concomitant]
     Active Substance: METRONIDAZOLE
     Dosage: 500.0UG UNKNOWN
     Route: 065
     Dates: start: 20090125
  39. ZESTRIL [Concomitant]
     Active Substance: LISINOPRIL
     Route: 065
  40. ACCUPRIL [Concomitant]
     Active Substance: QUINAPRIL HYDROCHLORIDE
     Route: 065
  41. VEROSPIRON [Concomitant]
     Active Substance: SPIRONOLACTONE
     Route: 065
  42. DYAZIDE [Concomitant]
     Active Substance: HYDROCHLOROTHIAZIDE\TRIAMTERENE
     Route: 065
  43. TAMSULOSIN [Concomitant]
     Active Substance: TAMSULOSIN
     Route: 065
     Dates: start: 20170913
  44. GABAPENTIN. [Concomitant]
     Active Substance: GABAPENTIN
     Route: 065
  45. NEXIUM [Suspect]
     Active Substance: ESOMEPRAZOLE MAGNESIUM
     Indication: GASTROOESOPHAGEAL REFLUX DISEASE
     Route: 048
     Dates: start: 20050322, end: 2009
  46. PROTONIX [Suspect]
     Active Substance: PANTOPRAZOLE SODIUM
     Indication: PROPHYLAXIS AGAINST GASTROINTESTINAL ULCER
     Route: 048
     Dates: start: 2009, end: 2016
  47. PROTONIX [Suspect]
     Active Substance: PANTOPRAZOLE SODIUM
     Indication: PROPHYLAXIS AGAINST GASTROINTESTINAL ULCER
     Dosage: 40.0MG UNKNOWN
     Route: 065
     Dates: start: 20081012
  48. PROTONIX [Suspect]
     Active Substance: PANTOPRAZOLE SODIUM
     Indication: PEPTIC ULCER
     Dosage: EVERY 12 HOURS FOR TWO DAYS AND THEN DAILY UNKNOWN
     Route: 065
     Dates: start: 20130504, end: 20130505
  49. DEXILANT [Suspect]
     Active Substance: DEXLANSOPRAZOLE
     Route: 065
  50. MICARDIS [Concomitant]
     Active Substance: TELMISARTAN
     Route: 065
  51. AMLODIPINE [Concomitant]
     Active Substance: AMLODIPINE BESYLATE
     Route: 048
  52. ZANAFLEX [Concomitant]
     Active Substance: TIZANIDINE HYDROCHLORIDE
     Dosage: 2 TIMES DAILY AS NEEDED.
     Route: 048
  53. CARVEDILOL. [Concomitant]
     Active Substance: CARVEDILOL
     Dosage: 2 TIMES DAILY
     Route: 048
  54. DIPHENHYDRAMINE HYDROCHLORIDE. [Concomitant]
     Active Substance: DIPHENHYDRAMINE HYDROCHLORIDE
     Dosage: EVERY 4 HOUR AS NEEDED.
     Route: 048
  55. ULORIC [Concomitant]
     Active Substance: FEBUXOSTAT
     Route: 048
  56. PROTONIX [Suspect]
     Active Substance: PANTOPRAZOLE SODIUM
     Indication: GASTROOESOPHAGEAL REFLUX DISEASE
     Dosage: EVERY 12 HOURS FOR TWO DAYS AND THEN DAILY UNKNOWN
     Route: 065
     Dates: start: 20130504, end: 20130505
  57. DIOVAN [Concomitant]
     Active Substance: VALSARTAN
     Route: 048
     Dates: start: 20100127
  58. ONDANSETRON [Concomitant]
     Active Substance: ONDANSETRON
     Dosage: 8.0UG UNKNOWN
     Route: 065
     Dates: start: 20150227
  59. VASOTEC [Concomitant]
     Active Substance: ENALAPRIL MALEATE
     Route: 065
  60. APO-HYDRO [Concomitant]
     Active Substance: HYDROCHLOROTHIAZIDE
     Route: 065
  61. ALDACTAZIDE [Concomitant]
     Active Substance: HYDROCHLOROTHIAZIDE\SPIRONOLACTONE
     Route: 065
  62. ALBUTEROL. [Concomitant]
     Active Substance: ALBUTEROL
     Route: 065
  63. CLOPIDOGREL [Concomitant]
     Active Substance: CLOPIDOGREL BISULFATE
     Route: 048
  64. HYDROCODONE [Concomitant]
     Active Substance: HYDROCODONE
     Route: 065
     Dates: start: 2005
  65. PREVACID [Suspect]
     Active Substance: LANSOPRAZOLE
     Route: 065
  66. AMLODIPINE BESYLATE. [Concomitant]
     Active Substance: AMLODIPINE BESYLATE
     Dosage: 10.0UG UNKNOWN
     Route: 065
     Dates: start: 20091211
  67. LOTENSIN [Concomitant]
     Active Substance: BENAZEPRIL HYDROCHLORIDE
     Indication: HYPERTENSION
     Route: 065
  68. CALCIUM ACETATE. [Concomitant]
     Active Substance: CALCIUM ACETATE
     Dosage: 2 PILLS THREE TIMES A DAY
     Route: 048
  69. VIAGRA [Concomitant]
     Active Substance: SILDENAFIL CITRATE
     Route: 065
     Dates: start: 2008
  70. BENADRYL [Concomitant]
     Active Substance: DIPHENHYDRAMINE HYDROCHLORIDE
     Indication: PRURITUS
     Route: 065
     Dates: start: 2016, end: 2017
  71. NEXIUM [Suspect]
     Active Substance: ESOMEPRAZOLE MAGNESIUM
     Indication: PEPTIC ULCER
     Route: 048
     Dates: start: 20050322, end: 2009

REACTIONS (17)
  - Hypokalaemia [Unknown]
  - Renal impairment [Not Recovered/Not Resolved]
  - Staphylococcal infection [Unknown]
  - Renal cyst [Unknown]
  - Angina pectoris [Unknown]
  - Constipation [Unknown]
  - Dehydration [Unknown]
  - Diabetes mellitus [Unknown]
  - End stage renal disease [Not Recovered/Not Resolved]
  - Renal failure [Not Recovered/Not Resolved]
  - Intermittent claudication [Unknown]
  - Dyslipidaemia [Unknown]
  - Hypertension [Unknown]
  - Chronic kidney disease [Not Recovered/Not Resolved]
  - Acute kidney injury [Not Recovered/Not Resolved]
  - Benign prostatic hyperplasia [Unknown]
  - Gout [Unknown]

NARRATIVE: CASE EVENT DATE: 20071130
